FAERS Safety Report 18298244 (Version 1)
Quarter: 2020Q3

REPORT INFORMATION
  Report Type: Spontaneous
  Country: GB (occurrence: GB)
  Receive Date: 20200922
  Receipt Date: 20200922
  Transmission Date: 20201103
  Serious: Yes (Other)
  Sender: FDA-Public Use
  Company Number: GB-OTSUKA-2020_022881

PATIENT
  Age: 60 Year
  Sex: Male

DRUGS (3)
  1. BUSULFAN. [Suspect]
     Active Substance: BUSULFAN
     Indication: BONE MARROW CONDITIONING REGIMEN
     Dosage: UNK, UNKNOWN
     Route: 065
  2. ALEMTUZUMAB [Suspect]
     Active Substance: ALEMTUZUMAB
     Indication: BONE MARROW CONDITIONING REGIMEN
     Dosage: 50 MG; UNKNOWN
     Route: 065
  3. FLUDARABINE PHOSPHATE. [Suspect]
     Active Substance: FLUDARABINE PHOSPHATE
     Indication: BONE MARROW CONDITIONING REGIMEN
     Dosage: UNK, UNKNOWN
     Route: 065

REACTIONS (8)
  - Autoimmune pancytopenia [Recovered/Resolved]
  - Anaemia [Recovered/Resolved]
  - BK virus infection [Unknown]
  - Off label use [Unknown]
  - Cystitis haemorrhagic [Unknown]
  - Large granular lymphocytosis [Recovered/Resolved]
  - Aplasia pure red cell [Recovered/Resolved]
  - Cytomegalovirus infection reactivation [Recovered/Resolved]
